FAERS Safety Report 4894682-8 (Version None)
Quarter: 2006Q1

REPORT INFORMATION
  Report Type: 
  Country: None (occurrence: None)
  Receive Date: 20060127
  Receipt Date: 20051005
  Transmission Date: 20060701
  Serious: Yes (Hospitalization)
  Sender: FDA-Public Use
  Company Number: AU-MERCK-0601AUS00218

PATIENT
  Sex: Female
  Weight: 82 kg

DRUGS (1)
  1. VIOXX [Suspect]
     Indication: ARTHRITIS
     Dates: start: 20020220, end: 20041001

REACTIONS (3)
  - ADVERSE EVENT [None]
  - EMOTIONAL DISTRESS [None]
  - ISCHAEMIC STROKE [None]
